FAERS Safety Report 8100343-4 (Version None)
Quarter: 2012Q1

REPORT INFORMATION
  Report Type: 
  Country: None (occurrence: None)
  Receive Date: 20120129
  Receipt Date: 20111123
  Transmission Date: 20120608
  Serious: No
  Sender: FDA-Public Use
  Company Number: US-ABBOTT-11P-163-0877843-00

PATIENT
  Age: 53 Year
  Sex: Male

DRUGS (5)
  1. CALCIUM [Concomitant]
     Indication: MINERAL SUPPLEMENTATION
  2. CAPTOPURINE [Concomitant]
     Indication: COLITIS ULCERATIVE
  3. HUMIRA [Suspect]
     Indication: COLITIS ULCERATIVE
     Dosage: LOADING DOSE
     Dates: start: 20111025
  4. ASACOL [Concomitant]
     Indication: COLITIS ULCERATIVE
  5. IRON [Concomitant]
     Indication: MINERAL SUPPLEMENTATION

REACTIONS (1)
  - PRURITUS [None]
